FAERS Safety Report 4704866-7 (Version None)
Quarter: 2005Q3

REPORT INFORMATION
  Report Type: 
  Country: None (occurrence: None)
  Receive Date: 20050701
  Receipt Date: 20050525
  Transmission Date: 20060218
  Serious: Yes (Other)
  Sender: FDA-Public Use
  Company Number: PHBS2005NZ07551

PATIENT
  Age: 41 Year
  Sex: Male

DRUGS (4)
  1. OLANZAPINE [Concomitant]
     Dosage: 20 MG/D
     Dates: start: 20050516
  2. OLANZAPINE [Concomitant]
     Dosage: 10 MG/D
  3. PREDNISONE [Concomitant]
  4. CLOZARIL [Suspect]
     Dosage: UNK, UNK
     Route: 048
     Dates: start: 20050516, end: 20050526

REACTIONS (6)
  - BLOOD CREATINE PHOSPHOKINASE INCREASED [None]
  - BLOOD CREATINE PHOSPHOKINASE MM [None]
  - CONSTIPATION [None]
  - DERMATOMYOSITIS [None]
  - MUSCLE RIGIDITY [None]
  - MUSCULAR WEAKNESS [None]
